FAERS Safety Report 4467058-5 (Version None)
Quarter: 2004Q4

REPORT INFORMATION
  Report Type: 
  Country: None (occurrence: None)
  Receive Date: 20041001
  Receipt Date: 20041001
  Transmission Date: 20050328
  Serious: Yes (Hospitalization)
  Sender: FDA-Public Use
  Company Number: None

PATIENT
  Age: 82 Year
  Sex: Female
  Weight: 63.5036 kg

DRUGS (1)
  1. ARIXTRA [Suspect]
     Indication: DEEP VENOUS THROMBOSIS PROPHYLAXIS
     Dosage: 2.5 MG SQ DAILY
     Route: 058
     Dates: start: 20041113, end: 20031126

REACTIONS (1)
  - OPERATIVE HAEMORRHAGE [None]
